FAERS Safety Report 7170566-X (Version None)
Quarter: 2010Q4

REPORT INFORMATION
  Report Type: 
  Country: None (occurrence: None)
  Receive Date: 20101217
  Receipt Date: 20100927
  Transmission Date: 20110411
  Serious: Yes (Other)
  Sender: FDA-Public Use
  Company Number: A0874231A

PATIENT
  Age: 33 Year
  Sex: Male
  Weight: 73.6 kg

DRUGS (3)
  1. LEXIVA [Suspect]
     Indication: HIV INFECTION
     Dosage: 1400MG PER DAY
     Route: 048
     Dates: start: 20070601
  2. EPZICOM [Concomitant]
     Route: 048
     Dates: start: 20070601
  3. NORVIR [Concomitant]
     Dosage: 100MG PER DAY
     Route: 048
     Dates: start: 20070601

REACTIONS (1)
  - NEPHROLITHIASIS [None]
